FAERS Safety Report 4399934-6 (Version None)
Quarter: 2004Q3

REPORT INFORMATION
  Report Type: 
  Country: None (occurrence: None)
  Receive Date: 20040716
  Receipt Date: 20040709
  Transmission Date: 20050211
  Serious: Yes (Other)
  Sender: FDA-Public Use
  Company Number: 2004222831JP

PATIENT
  Age: 56 Year
  Sex: Male

DRUGS (3)
  1. MEDROL [Suspect]
     Indication: IMMUNOSUPPRESSION
     Dosage: 12 MG, QD, ORAL
     Route: 048
     Dates: start: 20011004
  2. PROGRAF [Suspect]
     Indication: IMMUNOSUPPRESSION
     Dosage: 4.5 MG, QD
  3. CELLCEPT [Suspect]
     Indication: IMMUNOSUPPRESSION
     Dosage: 1000 MG, QD, ORAL
     Route: 048

REACTIONS (5)
  - BK VIRUS INFECTION [None]
  - BLOOD CREATININE INCREASED [None]
  - EPIDEMIC NEPHROPATHY [None]
  - KIDNEY TRANSPLANT REJECTION [None]
  - URINE ANALYSIS ABNORMAL [None]
